FAERS Safety Report 4920714-4 (Version None)
Quarter: 2006Q1

REPORT INFORMATION
  Report Type: 
  Country: None (occurrence: None)
  Receive Date: 20060217
  Receipt Date: 20060207
  Transmission Date: 20060701
  Serious: Yes (Disabling, Other)
  Sender: FDA-Public Use
  Company Number: 200610702BWH

PATIENT

DRUGS (5)
  1. LEVITRA [Suspect]
     Indication: ERECTILE DYSFUNCTION
     Dosage: 20 MG TOTAL DAILY ORAL
     Route: 048
     Dates: start: 20050801
  2. FENTANYL CITRATE [Concomitant]
  3. PERCOCET [Concomitant]
  4. KLONOPIN [Concomitant]
  5. PHENERGAN [Concomitant]

REACTIONS (4)
  - BLINDNESS TRANSIENT [None]
  - EYE PAIN [None]
  - HEADACHE [None]
  - VISION BLURRED [None]
